FAERS Safety Report 16408818 (Version 1)
Quarter: 2019Q2

REPORT INFORMATION
  Report Type: Spontaneous
  Country: DE (occurrence: DE)
  Receive Date: 20190610
  Receipt Date: 20190610
  Transmission Date: 20190711
  Serious: Yes (Other)
  Sender: FDA-Public Use
  Company Number: DE-ROCHE-2328358

PATIENT
  Age: 35 Year
  Sex: Female

DRUGS (4)
  1. OCREVUS [Suspect]
     Active Substance: OCRELIZUMAB
     Dosage: 2ND INFUSION?/APR/2018
     Route: 042
  2. OCREVUS [Suspect]
     Active Substance: OCRELIZUMAB
     Dosage: /SEP/2018
     Route: 042
  3. OCREVUS [Suspect]
     Active Substance: OCRELIZUMAB
     Indication: PRODUCT USED FOR UNKNOWN INDICATION
     Dosage: 1ST INFUSION?FEB/2018 OR MAR/2018
     Route: 042
  4. OCREVUS [Suspect]
     Active Substance: OCRELIZUMAB
     Dosage: /APR/2019
     Route: 042

REACTIONS (3)
  - Multiple sclerosis [Recovered/Resolved]
  - Dizziness [Unknown]
  - Decreased vibratory sense [Unknown]

NARRATIVE: CASE EVENT DATE: 201803
